FAERS Safety Report 5766612-8 (Version None)
Quarter: 2008Q2

REPORT INFORMATION
  Report Type: 
  Country: None (occurrence: None)
  Receive Date: 20080609
  Receipt Date: 20080601
  Transmission Date: 20081010
  Serious: Yes (Other)
  Sender: FDA-Public Use
  Company Number: 2008SP010438

PATIENT
  Age: 49 Year
  Sex: Male

DRUGS (4)
  1. RIBAVIRIN [Suspect]
     Indication: HEPATITIS C
     Dosage: PO
     Route: 048
     Dates: start: 20010101, end: 20010101
  2. RIBAVIRIN [Suspect]
     Indication: HEPATITIS C
     Dosage: PO
     Route: 048
     Dates: start: 20080420
  3. INTRON A [Suspect]
     Indication: HEPATITIS
     Dates: start: 20010101, end: 20010101
  4. INTRON A [Suspect]
     Indication: HEPATITIS
     Dates: start: 20080420

REACTIONS (5)
  - HYPERTENSION [None]
  - LIVER TRANSPLANT [None]
  - NO THERAPEUTIC RESPONSE [None]
  - SCAR [None]
  - TYPE 2 DIABETES MELLITUS [None]
